FAERS Safety Report 6329047-5 (Version None)
Quarter: 2009Q3

REPORT INFORMATION
  Report Type: 
  Country: None (occurrence: None)
  Receive Date: 20090826
  Receipt Date: 20090504
  Transmission Date: 20100115
  Serious: Yes (Hospitalization, Other)
  Sender: FDA-Public Use
  Company Number: CN-NOVOPROD-286507

PATIENT
  Age: 64 Year
  Sex: Female
  Weight: 53 kg

DRUGS (2)
  1. NOVOLIN R [Suspect]
     Indication: TYPE 2 DIABETES MELLITUS
     Dosage: 18+12IU
     Route: 058
     Dates: start: 20090417, end: 20090417
  2. DOXIUM [Concomitant]
     Route: 048

REACTIONS (1)
  - MYOCARDIAL ISCHAEMIA [None]
